FAERS Safety Report 25718922 (Version 1)
Quarter: 2025Q3

REPORT INFORMATION
  Report Type: Spontaneous
  Country: ZA (occurrence: ZA)
  Receive Date: 20250823
  Receipt Date: 20250823
  Transmission Date: 20251021
  Serious: Yes (Life-Threatening)
  Sender: MACLEODS
  Company Number: ZA-MACLEODS PHARMA-MAC2025054811

PATIENT

DRUGS (2)
  1. LURASIDONE [Suspect]
     Active Substance: LURASIDONE
     Indication: Product used for unknown indication
     Route: 065
  2. TEGRETOL XR [Concomitant]
     Active Substance: CARBAMAZEPINE
     Indication: Bipolar disorder
     Route: 065
     Dates: start: 20250620, end: 20250722

REACTIONS (1)
  - Stevens-Johnson syndrome [Recovering/Resolving]
